FAERS Safety Report 19427109 (Version 1)
Quarter: 2021Q2

REPORT INFORMATION
  Report Type: Spontaneous
  Country: US (occurrence: US)
  Receive Date: 20210617
  Receipt Date: 20210617
  Transmission Date: 20210717
  Serious: No
  Sender: FDA-Public Use
  Company Number: US-GLAXOSMITHKLINE-USCH2021038060

PATIENT
  Age: 50 Year
  Sex: Female

DRUGS (1)
  1. ALLI [Suspect]
     Active Substance: ORLISTAT
     Indication: WEIGHT LOSS DIET
     Dosage: 5 DF, 1D

REACTIONS (4)
  - Abdominal discomfort [Unknown]
  - Change of bowel habit [Unknown]
  - Intentional overdose [Unknown]
  - Dysgeusia [Unknown]

NARRATIVE: CASE EVENT DATE: 20210613
